FAERS Safety Report 8486644-9 (Version None)
Quarter: 2012Q3

REPORT INFORMATION
  Report Type: 
  Country: None (occurrence: None)
  Receive Date: 20120703
  Receipt Date: 20120628
  Transmission Date: 20120928
  Serious: No
  Sender: FDA-Public Use
  Company Number: US-B.I. PHARMACEUTICALS,INC./RIDGEFIELD-2011-BP-07711BP

PATIENT
  Sex: Male

DRUGS (3)
  1. DIOVAN [Concomitant]
     Indication: CARDIAC DISORDER
     Route: 048
     Dates: start: 20110301
  2. DIOVAN [Concomitant]
     Indication: BLOOD PRESSURE ABNORMAL
  3. PRADAXA [Suspect]
     Indication: ATRIAL FIBRILLATION
     Dosage: 300 MG
     Route: 048
     Dates: start: 20110301

REACTIONS (9)
  - SKIN EXFOLIATION [None]
  - FALL [None]
  - SKIN CHAPPED [None]
  - SKIN HAEMORRHAGE [None]
  - PAIN IN EXTREMITY [None]
  - SKIN IRRITATION [None]
  - RASH [None]
  - RIB FRACTURE [None]
  - BLOOD IRON INCREASED [None]
